FAERS Safety Report 8890196 (Version 1)
Quarter: 2012Q4

REPORT INFORMATION
  Report Type: Spontaneous
  Country: FR (occurrence: None)
  Receive Date: 20121031
  Receipt Date: 20121031
  Transmission Date: 20130627
  Serious: Yes (Hospitalization)
  Sender: FDA-Public Use
  Company Number: FR 1997 0040

PATIENT
  Sex: Female

DRUGS (6)
  1. LIPIODOL ULTRA FLUIDE {ETHIODIZED OIL) NKNOWN [Suspect]
     Dosage: (Intake rate: 1/1/)
(not otherwise specified))
     Route: 042
     Dates: start: 19970226, end: 19970226
  2. LIPIODOL ULTRA FLUIDE {ETHIODIZED OIL) NKNOWN [Suspect]
     Dosage: (Intake rate: 1/1/)
(not otherwise specified))
     Route: 042
     Dates: start: 19970319, end: 19970319
  3. HISTOACRYL (ENBUCRILATE) [Suspect]
     Indication: DRUG USE FOR UNKNOWN INDICATION
     Dosage: (not otherwise specified))
     Route: 042
  4. NOZINAN (LEVOMEPROMAZINE)(LEVOMEPROMZINE) [Concomitant]
  5. ANA FRANIL (CLOMIPRAMINE HYDROHLORIDE)(CLOMIPRAMINE HYDROCHLORIDE) [Concomitant]
  6. ATRIUM (DIFEBARBAMATE, FEBARBAMATE, PHENOBARBITAL) (DIFEBARBAMATE, FEBARBAMATE, PHENOBARBITAL) [Concomitant]

REACTIONS (2)
  - Haemolysis [None]
  - Interstitial lung disease [None]
